FAERS Safety Report 21923433 (Version 3)
Quarter: 2025Q2

REPORT INFORMATION
  Report Type: Spontaneous
  Country: US (occurrence: US)
  Receive Date: 20230129
  Receipt Date: 20250529
  Transmission Date: 20250716
  Serious: No
  Sender: CIPLA
  Company Number: US-CIPLA LTD.-2022US07233

PATIENT

DRUGS (6)
  1. ALBUTEROL [Suspect]
     Active Substance: ALBUTEROL
     Indication: Asthma
     Route: 065
  2. ALBUTEROL [Suspect]
     Active Substance: ALBUTEROL
     Dates: start: 202210
  3. ALBUTEROL [Suspect]
     Active Substance: ALBUTEROL
     Dates: start: 202210
  4. ALBUTEROL [Suspect]
     Active Substance: ALBUTEROL
     Dates: start: 2022, end: 20221111
  5. TRAZODONE [Concomitant]
     Active Substance: TRAZODONE HYDROCHLORIDE
     Indication: Post-traumatic stress disorder
     Dosage: 100 MILLIGRAM, QD (ONE PILL ONCE A DAY AT BEDTIME)
     Route: 065
     Dates: start: 202206
  6. PROVENTIL [Concomitant]
     Active Substance: ALBUTEROL
     Indication: Asthma
     Route: 065
     Dates: start: 1997

REACTIONS (10)
  - Restrictive pulmonary disease [Not Recovered/Not Resolved]
  - Condition aggravated [Recovered/Resolved]
  - Dyspnoea [Recovered/Resolved]
  - Cough [Recovered/Resolved]
  - Wheezing [Recovered/Resolved]
  - Device defective [Unknown]
  - Product delivery mechanism issue [Unknown]
  - Product formulation issue [Unknown]
  - Device issue [Unknown]
  - Poor quality product administered [Unknown]

NARRATIVE: CASE EVENT DATE: 20221001
